APPROVED DRUG PRODUCT: DOCETAXEL
Active Ingredient: DOCETAXEL
Strength: 160MG/8ML (20MG/ML)
Dosage Form/Route: INJECTABLE;INJECTION
Application: A209640 | Product #003 | TE Code: AP
Applicant: AMNEAL EU LTD
Approved: Jan 19, 2018 | RLD: No | RS: Yes | Type: RX